FAERS Safety Report 13719577 (Version 2)
Quarter: 2017Q3

REPORT INFORMATION
  Report Type: Spontaneous
  Country: US (occurrence: US)
  Receive Date: 20170705
  Receipt Date: 20170720
  Transmission Date: 20171127
  Serious: Yes (Other)
  Sender: FDA-Public Use
  Company Number: US-GLAXOSMITHKLINE-US2017101252

PATIENT
  Age: 58 Year
  Sex: Male
  Weight: 71.66 kg

DRUGS (2)
  1. BREO ELLIPTA [Suspect]
     Active Substance: FLUTICASONE FUROATE\VILANTEROL TRIFENATATE
     Indication: CHRONIC OBSTRUCTIVE PULMONARY DISEASE
     Dosage: 1 PUFF(S), QD
     Dates: start: 201512
  2. BREO ELLIPTA [Suspect]
     Active Substance: FLUTICASONE FUROATE\VILANTEROL TRIFENATATE
     Indication: X-RAY ABNORMAL
     Dosage: 200/25
     Dates: start: 201610, end: 20170629

REACTIONS (7)
  - Homicidal ideation [Unknown]
  - Hallucination, visual [Unknown]
  - Hyperventilation [Recovering/Resolving]
  - Psychiatric symptom [Recovering/Resolving]
  - Sleep disorder [Unknown]
  - Suicidal ideation [Unknown]
  - Oxygen saturation decreased [Unknown]

NARRATIVE: CASE EVENT DATE: 201606
